FAERS Safety Report 10636575 (Version 1)
Quarter: 2014Q4

REPORT INFORMATION
  Report Type: Spontaneous
  Country: GB (occurrence: GB)
  Receive Date: 20141208
  Receipt Date: 20141208
  Transmission Date: 20150529
  Serious: Yes (Hospitalization)
  Sender: FDA-Public Use
  Company Number: GB-TEVA-525396ISR

PATIENT
  Age: 87 Year

DRUGS (10)
  1. AMLODIPINE [Concomitant]
     Active Substance: AMLODIPINE BESYLATE
  2. BISOPROLOL [Suspect]
     Active Substance: BISOPROLOL
     Dosage: 10 MILLIGRAM DAILY; 10MG OD
  3. ATORVASTATIN [Concomitant]
     Active Substance: ATORVASTATIN
  4. BUMETANIDE. [Concomitant]
     Active Substance: BUMETANIDE
  5. DIGOXIN. [Suspect]
     Active Substance: DIGOXIN
     Dosage: 125 MICROGRAM DAILY; 125MCG OD
  6. GLYCERYL TRINITRATE [Concomitant]
     Active Substance: NITROGLYCERIN
  7. CANDESARTAN [Concomitant]
     Active Substance: CANDESARTAN
  8. COLECALCIFEROL [Concomitant]
     Active Substance: CHOLECALCIFEROL
  9. SERTRALINE [Concomitant]
     Active Substance: SERTRALINE HYDROCHLORIDE
  10. WARFARIN [Concomitant]
     Active Substance: WARFARIN

REACTIONS (2)
  - Bradycardia [Recovering/Resolving]
  - Confusional state [Recovering/Resolving]
